FAERS Safety Report 8241756-X (Version None)
Quarter: 2012Q1

REPORT INFORMATION
  Report Type: 
  Country: None (occurrence: None)
  Receive Date: 20120328
  Receipt Date: 20120323
  Transmission Date: 20120608
  Serious: Yes (Hospitalization, Disabling)
  Sender: FDA-Public Use
  Company Number: US-MERCK-1003USA02337

PATIENT
  Age: 55 Year
  Sex: Female

DRUGS (3)
  1. FOSAMAX [Suspect]
     Indication: OSTEOPENIA
     Route: 048
     Dates: start: 19990901
  2. CALCIUM (UNSPECIFIED) [Concomitant]
     Route: 065
     Dates: start: 19860101
  3. LIPITOR [Concomitant]
     Route: 065
     Dates: start: 19970101

REACTIONS (3)
  - LOW TURNOVER OSTEOPATHY [None]
  - ARTHRITIS [None]
  - FEMUR FRACTURE [None]
